FAERS Safety Report 20965301 (Version 3)
Quarter: 2022Q3

REPORT INFORMATION
  Report Type: Spontaneous
  Country: US (occurrence: US)
  Receive Date: 20220616
  Receipt Date: 20220825
  Transmission Date: 20221027
  Serious: No
  Sender: FDA-Public Use
  Company Number: US-BRISTOL-MYERS SQUIBB COMPANY-2022-057603

PATIENT
  Age: 71 Year
  Sex: Female

DRUGS (4)
  1. REVLIMID [Suspect]
     Active Substance: LENALIDOMIDE
     Indication: Non-Hodgkin^s lymphoma
     Dosage: FREQ: TAKE 1 CAPSULE BY MOUTH DAILY AT BEDTIME ON DAYS 1-21 WITH 7 DAYS OFF
     Route: 048
  2. REVLIMID [Suspect]
     Active Substance: LENALIDOMIDE
     Route: 065
  3. REVLIMID [Suspect]
     Active Substance: LENALIDOMIDE
     Dosage: 1 DF : 1 CAPSULE?1-21 DAYS WITH 7 DAYS OFF
     Route: 048
     Dates: start: 20220201
  4. REVLIMID [Suspect]
     Active Substance: LENALIDOMIDE
     Dosage: DAILY ON DAYS 1-21 WITH 7 DAYS OFF
     Route: 048
     Dates: start: 20220201

REACTIONS (2)
  - White blood cell count decreased [Recovered/Resolved]
  - Full blood count decreased [Unknown]
